FAERS Safety Report 10697108 (Version 2)
Quarter: 2015Q1

REPORT INFORMATION
  Report Type: Report from Study
  Country: DE (occurrence: DE)
  Receive Date: 20150108
  Receipt Date: 20150108
  Transmission Date: 20150721
  Serious: Yes (Death)
  Sender: FDA-Public Use
  Company Number: DE-ROCHE-1492420

PATIENT
  Age: 74 Year
  Sex: Female
  Weight: 77 kg

DRUGS (6)
  1. BEVACIZUMAB [Suspect]
     Active Substance: BEVACIZUMAB
     Indication: OVARIAN CANCER
     Dosage: LAST DOSE PRIOR TO SERIOUS ADVERSE EVENT (SAE) : 09/OCT/2014
     Route: 042
     Dates: start: 20140123
  2. AMLODIPIN [Concomitant]
     Active Substance: AMLODIPINE BESYLATE
     Indication: HYPERTENSION
     Route: 048
     Dates: start: 20140710, end: 20141125
  3. DOXORUBICIN [Suspect]
     Active Substance: DOXORUBICIN
     Indication: OVARIAN CANCER
     Dosage: LAST DOSE PRIOR TO SERIOUS ADVERSE EVENT (SAE): 26/MAY/2014
     Route: 042
     Dates: start: 20140106
  4. CARVEDILOL. [Concomitant]
     Active Substance: CARVEDILOL
     Indication: HYPERTENSION
     Route: 048
     Dates: start: 20140804, end: 20141117
  5. CARBOPLATIN. [Suspect]
     Active Substance: CARBOPLATIN
     Indication: OVARIAN CANCER
     Dosage: LAST DOSE PRIOR TO SERIOUS ADVERSE EVENT (SAE): 26/MAY/2014
     Route: 042
     Dates: start: 20140106
  6. CARVEDILOL. [Concomitant]
     Active Substance: CARVEDILOL
     Route: 048
     Dates: start: 20141117, end: 20141125

REACTIONS (1)
  - Subileus [Fatal]

NARRATIVE: CASE EVENT DATE: 20141117
